FAERS Safety Report 20696372 (Version 1)
Quarter: 2022Q2

REPORT INFORMATION
  Report Type: Spontaneous
  Country: IT (occurrence: IT)
  Receive Date: 20220411
  Receipt Date: 20220411
  Transmission Date: 20220721
  Serious: Yes (Hospitalization)
  Sender: FDA-Public Use
  Company Number: IT-SA-2022SA123943

PATIENT
  Age: 59 Year
  Sex: Female

DRUGS (1)
  1. IRBESARTAN [Suspect]
     Active Substance: IRBESARTAN
     Dosage: UNK

REACTIONS (6)
  - Gastrointestinal disorder [Recovering/Resolving]
  - Intestinal intraepithelial lymphocytes increased [Recovering/Resolving]
  - Cryptitis [Recovering/Resolving]
  - Chronic gastritis [Recovering/Resolving]
  - Malabsorption [Recovering/Resolving]
  - Intestinal villi atrophy [Recovering/Resolving]
